FAERS Safety Report 8336971-0 (Version None)
Quarter: 2012Q2

REPORT INFORMATION
  Report Type: 
  Country: None (occurrence: None)
  Receive Date: 20120501
  Receipt Date: 20120418
  Transmission Date: 20120825
  Serious: Yes (Death)
  Sender: FDA-Public Use
  Company Number: 1253160

PATIENT
  Age: 16 Year
  Sex: 0

DRUGS (7)
  1. VINCRISTINE SULFATE [Suspect]
     Indication: PRODUCT USED FOR UNKNOWN INDICATION
     Dosage: 2 MG, SINGLE INTAKE, INTRAVENOUS DRIP
     Route: 041
     Dates: start: 20120204
  2. (SOLUPRED /00016201/) [Concomitant]
  3. MABTHERA [Suspect]
     Indication: PRODUCT USED FOR UNKNOWN INDICATION
     Dosage: 650 MG, SINGLE INTAKE, INTRAVENOUS (NOT  OTHERWISE SPECIFIED)
     Route: 042
     Dates: start: 20120202
  4. CYCLOPHOSPHAMIDE [Suspect]
     Indication: PRODUCT USED FOR UNKNOWN INDICATION
     Dosage: 432 MG MILLIGRAM(S) ( 1 DAY ) INTRAVENOUS (NOT OTHERWISE SPECIFIED)
     Route: 042
     Dates: start: 20120205, end: 20120207
  5. METHOTREXATE [Suspect]
     Indication: PRODUCT USED FOR UNKNOWN INDICATION
     Dosage: 5193 MG, SINGLE INTAKE, INTRAVENOUS DRIP, 15 MG MILLIGRAM(S)INTRATHECAL
     Route: 041
     Dates: start: 20120204
  6. DOXORUBICIN HCL [Suspect]
     Indication: PRODUCT USED FOR UNKNOWN INDICATION
     Dosage: 104 MG, SINGLE INTAKE, INTRAVENOUS (NOT OTHERWISE SPECIFIED)
     Route: 042
     Dates: start: 20120205
  7. LASIX [Concomitant]

REACTIONS (21)
  - ERYTHEMA [None]
  - LEUKOCYTOCLASTIC VASCULITIS [None]
  - ACUTE HAEMORRHAGIC CONJUNCTIVITIS [None]
  - TOXIC EPIDERMAL NECROLYSIS [None]
  - LYMPHOPENIA [None]
  - MEDIASTINAL MASS [None]
  - PULMONARY OEDEMA [None]
  - MULTI-ORGAN FAILURE [None]
  - RESPIRATORY FAILURE [None]
  - HEPATIC FAILURE [None]
  - WEIGHT DECREASED [None]
  - PANCYTOPENIA [None]
  - DIALYSIS [None]
  - ANAEMIA [None]
  - HEPATOSPLENOMEGALY [None]
  - PRURIGO [None]
  - LYMPHADENOPATHY [None]
  - RENAL FAILURE [None]
  - ACIDOSIS [None]
  - ASTHENIA [None]
  - HEPATITIS FULMINANT [None]
